FAERS Safety Report 18985476 (Version 1)
Quarter: 2021Q1

REPORT INFORMATION
  Report Type: Spontaneous
  Country: US (occurrence: US)
  Receive Date: 20210309
  Receipt Date: 20210309
  Transmission Date: 20210420
  Serious: No
  Sender: FDA-Public Use
  Company Number: NVSC2021US052629

PATIENT
  Sex: Male

DRUGS (1)
  1. VOTRIENT [Suspect]
     Active Substance: PAZOPANIB HYDROCHLORIDE
     Indication: ILLNESS
     Dosage: 800 MG, QD
     Route: 048
     Dates: start: 202010

REACTIONS (2)
  - Product use in unapproved indication [Unknown]
  - Diarrhoea [Unknown]
